FAERS Safety Report 22245313 (Version 2)
Quarter: 2024Q3

REPORT INFORMATION
  Report Type: Report from Study
  Country: US (occurrence: US)
  Receive Date: 20230424
  Receipt Date: 20240902
  Transmission Date: 20241017
  Serious: Yes (Hospitalization)
  Sender: NOVARTIS
  Company Number: US-002147023-NVSC2023US090384

PATIENT
  Sex: Male

DRUGS (2)
  1. ENTRESTO [Suspect]
     Active Substance: SACUBITRIL\VALSARTAN
     Indication: Heart failure with reduced ejection fraction
     Dosage: 24 MG OF SACUBITRIL, 26 MG OF VALSARTAN, BID
     Route: 048
     Dates: start: 2022
  2. ENTRESTO [Suspect]
     Active Substance: SACUBITRIL\VALSARTAN
     Dosage: 24 MG OF SACUBITRIL, 26 MG OF VALSARTAN, BID
     Route: 048
     Dates: start: 2023

REACTIONS (11)
  - Rash [Unknown]
  - Insomnia [Unknown]
  - Dyspnoea [Unknown]
  - Hypotension [Unknown]
  - Pleural effusion [Unknown]
  - Swelling [Unknown]
  - Pruritus [Unknown]
  - Malaise [Unknown]
  - Skin disorder [Unknown]
  - Influenza [Unknown]
  - Fluid retention [Unknown]
